FAERS Safety Report 9664716 (Version 1)
Quarter: 2013Q4

REPORT INFORMATION
  Report Type: Spontaneous
  Country: DE (occurrence: DE)
  Receive Date: 20131101
  Receipt Date: 20131101
  Transmission Date: 20140711
  Serious: Yes (Death)
  Sender: FDA-Public Use
  Company Number: DE-BAYER-2013-131918

PATIENT
  Age: 88 Year
  Sex: Male

DRUGS (3)
  1. XARELTO [Suspect]
  2. ASS [Interacting]
  3. MARCUMAR [Interacting]
     Indication: ATRIAL FIBRILLATION

REACTIONS (3)
  - Traumatic intracranial haemorrhage [Fatal]
  - Dizziness [None]
  - Drug interaction [None]
